FAERS Safety Report 6596372-2 (Version None)
Quarter: 2010Q1

REPORT INFORMATION
  Report Type: 
  Country: None (occurrence: None)
  Receive Date: 20100223
  Receipt Date: 20100215
  Transmission Date: 20100710
  Serious: Yes (Hospitalization)
  Sender: FDA-Public Use
  Company Number: FR-ASTRAZENECA-2010SE06803

PATIENT
  Age: 85 Year
  Sex: Female

DRUGS (8)
  1. ATACAND [Suspect]
     Indication: HYPERTENSION
     Route: 048
     Dates: end: 20090810
  2. LASIX [Suspect]
     Indication: HYPERTENSION
     Route: 048
     Dates: end: 20090810
  3. CARDENSIEL [Suspect]
     Indication: HYPERTENSION
     Route: 048
     Dates: end: 20090810
  4. CRESTOR [Concomitant]
     Route: 048
  5. NEXIUM [Concomitant]
     Route: 048
  6. PARACETAMOL [Concomitant]
  7. PREVISCAN [Concomitant]
     Route: 048
  8. KARDEGIC [Concomitant]
     Route: 048

REACTIONS (3)
  - FALL [None]
  - HYPOKALAEMIA [None]
  - HYPOTENSION [None]
